FAERS Safety Report 14866576 (Version 2)
Quarter: 2019Q3

REPORT INFORMATION
  Report Type: Report from Study
  Country: US (occurrence: US)
  Receive Date: 20180508
  Receipt Date: 20190828
  Transmission Date: 20191004
  Serious: Yes (Hospitalization)
  Sender: FDA-Public Use
  Company Number: US-ALKERMES INC.-ALK-2018-000661

PATIENT
  Age: 39 Year
  Sex: Male

DRUGS (5)
  1. BLINDED PLACEBO [Suspect]
     Active Substance: INVESTIGATIONAL PRODUCT
     Indication: DRUG USE DISORDER
     Dosage: UNK
     Dates: start: 20171127
  2. VIVITROL [Suspect]
     Active Substance: NALTREXONE
     Indication: DRUG USE DISORDER
     Dosage: UNK
     Dates: start: 20171127
  3. BLINDED BUPROPION [Suspect]
     Active Substance: BUPROPION
     Indication: DRUG USE DISORDER
     Dosage: UNK
     Dates: start: 20171127
  4. WELLBUTRIN [Suspect]
     Active Substance: BUPROPION HYDROCHLORIDE
     Indication: DRUG DEPENDENCE
  5. WELLBUTRIN [Suspect]
     Active Substance: BUPROPION HYDROCHLORIDE
     Indication: SUBSTANCE DEPENDENCE
     Dosage: UNK
     Route: 048
     Dates: start: 20171127

REACTIONS (5)
  - Pneumonia [Recovered/Resolved]
  - Night sweats [Recovered/Resolved]
  - Pyrexia [Recovered/Resolved]
  - Weight decreased [Recovered/Resolved]
  - Cough [Recovered/Resolved]

NARRATIVE: CASE EVENT DATE: 20180115
